FAERS Safety Report 5332359-5 (Version None)
Quarter: 2007Q2

REPORT INFORMATION
  Report Type: 
  Country: None (occurrence: None)
  Receive Date: 20070523
  Receipt Date: 20070521
  Transmission Date: 20071010
  Serious: Yes (Other)
  Sender: FDA-Public Use
  Company Number: A0652239A

PATIENT
  Age: 38 Year
  Sex: Female
  Weight: 76 kg

DRUGS (3)
  1. AEROLIN [Suspect]
     Dosage: 8MG PER DAY
     Dates: start: 20070517, end: 20070517
  2. AEROLIN [Suspect]
  3. BUSCOPAN [Concomitant]
     Dates: start: 20070301

REACTIONS (3)
  - CONDITION AGGRAVATED [None]
  - DRUG EXPOSURE DURING PREGNANCY [None]
  - UTERINE CONTRACTIONS DURING PREGNANCY [None]
